FAERS Safety Report 12206943 (Version 1)
Quarter: 2016Q1

REPORT INFORMATION
  Report Type: Spontaneous
  Country: US (occurrence: None)
  Receive Date: 20160323
  Receipt Date: 20160323
  Transmission Date: 20160526
  Serious: Yes (Other)
  Sender: FDA-Public Use
  Company Number: None

PATIENT
  Age: 44 Year
  Sex: Male
  Weight: 72.58 kg

DRUGS (2)
  1. ACYCLOVIR. [Concomitant]
     Active Substance: ACYCLOVIR
  2. ATOVAQUONE 750MG/5ML PRASCO LABORATORIES [Suspect]
     Active Substance: ATOVAQUONE
     Indication: ANTIFUNGAL PROPHYLAXIS
     Route: 048
     Dates: start: 20160212, end: 20160317

REACTIONS (7)
  - Fatigue [None]
  - Abdominal discomfort [None]
  - Depression [None]
  - Product quality issue [None]
  - Constipation [None]
  - Decreased interest [None]
  - Lethargy [None]

NARRATIVE: CASE EVENT DATE: 20160212
